FAERS Safety Report 15209362 (Version 1)
Quarter: 2018Q3

REPORT INFORMATION
  Report Type: Spontaneous
  Country: US (occurrence: US)
  Receive Date: 20180727
  Receipt Date: 20180727
  Transmission Date: 20181010
  Serious: No
  Sender: FDA-Public Use
  Company Number: US-009507513-1201USA01559

PATIENT
  Age: 35 Year
  Sex: Female

DRUGS (9)
  1. EMTRICITABINE (+) TENOFOVIR DISOPROXIL FUMARATE [Suspect]
     Active Substance: EMTRICITABINE\TENOFOVIR DISOPROXIL
     Indication: ANTIRETROVIRAL THERAPY
     Dosage: TOTAL DAILY DOSE: 1 (UNKNOWN UNITS), COURSE# 1
     Route: 048
     Dates: start: 201009
  2. EMTRICITABINE (+) TENOFOVIR DISOPROXIL FUMARATE [Suspect]
     Active Substance: EMTRICITABINE\TENOFOVIR DISOPROXIL
     Dosage: TOTAL DAILY DOSE: 1 (UNKNOWN UNITS), COURSE# 2
     Route: 048
     Dates: start: 201101
  3. ZIDOVUDINE. [Suspect]
     Active Substance: ZIDOVUDINE
     Indication: ANTIRETROVIRAL THERAPY
     Dosage: TOTAL DAILY DOSE: 2 (UNKNOWN UNITS), COURSE# 1
     Route: 042
  4. ISENTRESS [Suspect]
     Active Substance: RALTEGRAVIR POTASSIUM
     Indication: ANTIRETROVIRAL THERAPY
     Dosage: TOTAL DAILY DOSE:800 (UNKNOWN UNITS), COURSE# 1
     Route: 048
     Dates: start: 201101
  5. LOPINAVIR (+) RITONAVIR [Suspect]
     Active Substance: LOPINAVIR\RITONAVIR
     Indication: ANTIRETROVIRAL THERAPY
     Dosage: TOTAL DAILY DOSE:4 (UNKNOWN UNITS), COURSE# 1
     Route: 048
     Dates: start: 201008
  6. LAMIVUDINE AND ZIDOVUDINE [Suspect]
     Active Substance: LAMIVUDINE\ZIDOVUDINE
     Indication: ANTIRETROVIRAL THERAPY
     Dosage: COURSE# 1
     Route: 048
     Dates: start: 201008
  7. ATAZANAVIR SULFATE. [Suspect]
     Active Substance: ATAZANAVIR SULFATE
     Indication: ANTIRETROVIRAL THERAPY
     Dosage: TOTAL DAILY DOSE:300 (UNKNOWN UNITS), COURSE# 1
     Route: 048
     Dates: start: 201009
  8. ZIDOVUDINE. [Suspect]
     Active Substance: ZIDOVUDINE
     Dosage: TOTAL DAILY DOSE: 1 (UNKNOWN UNITS), COURSE# 2
     Route: 042
  9. RITONAVIR. [Suspect]
     Active Substance: RITONAVIR
     Indication: ANTIRETROVIRAL THERAPY
     Dosage: TOTAL DAILY DOSE:100 (UNKNOWN UNITS), COURSE# 1
     Route: 048
     Dates: start: 201009

REACTIONS (2)
  - Maternal exposure during pregnancy [Recovered/Resolved]
  - No adverse event [Unknown]
